FAERS Safety Report 5023843-2 (Version None)
Quarter: 2006Q2

REPORT INFORMATION
  Report Type: 
  Country: None (occurrence: None)
  Receive Date: 20060606
  Receipt Date: 20000306
  Transmission Date: 20061013
  Serious: Yes (Hospitalization)
  Sender: FDA-Public Use
  Company Number: 200010229HMRI

PATIENT
  Age: 38 Year
  Sex: Female

DRUGS (1)
  1. ARAVA [Suspect]
     Dosage: PO
     Route: 048

REACTIONS (1)
  - CHLORACNE [None]
